FAERS Safety Report 14968093 (Version 2)
Quarter: 2018Q4

REPORT INFORMATION
  Report Type: Spontaneous
  Country: ES (occurrence: ES)
  Receive Date: 20180604
  Receipt Date: 20181029
  Transmission Date: 20190204
  Serious: Yes (Other)
  Sender: FDA-Public Use
  Company Number: ES-ACCORD-067587

PATIENT
  Age: 19 Year
  Sex: Female

DRUGS (12)
  1. INVEGA [Concomitant]
     Active Substance: PALIPERIDONE
     Dosage: 9 MG, UNK
  2. AKINETON [Concomitant]
     Active Substance: BIPERIDEN HYDROCHLORIDE
     Dosage: STRENGTH: 2 MG TABLETS
  3. TARDYFERON [Concomitant]
     Active Substance: FERROUS SULFATE
     Dosage: STRENGTH 80 MG
  4. VENLAFAXINE/VENLAFAXINE HYDROCHLORIDE [Concomitant]
     Dosage: 150 MG, QD
  5. ABILIFY [Suspect]
     Active Substance: ARIPIPRAZOLE
     Indication: PSYCHOTIC DISORDER
     Dosage: 5 MG, QD
     Route: 048
  6. VENLAFAXINE/VENLAFAXINE HYDROCHLORIDE [Concomitant]
     Dosage: 150 MG, IN THE MORNING
  7. XEPLION [Concomitant]
     Active Substance: PALIPERIDONE PALMITATE
     Dosage: 150 MG, UNK
     Dates: start: 20160205
  8. TRANXILIUM [Concomitant]
     Active Substance: CLORAZEPATE DIPOTASSIUM
     Dosage: STRENGTH 10 MG
  9. DIAZEPAM. [Concomitant]
     Active Substance: DIAZEPAM
     Dosage: 10 MG, TID
  10. ARIPIPRAZOLE. [Suspect]
     Active Substance: ARIPIPRAZOLE
     Indication: PSYCHOTIC DISORDER
  11. INVEGA [Concomitant]
     Active Substance: PALIPERIDONE
     Dosage: 150 MG, UNK
     Dates: start: 20160205
  12. PREGABALIN. [Concomitant]
     Active Substance: PREGABALIN
     Dosage: 300 MG, UNK

REACTIONS (6)
  - Weight increased [Recovered/Resolved]
  - Hypothyroidism [Unknown]
  - Gastrointestinal disorder [Recovered/Resolved]
  - Suicide attempt [Unknown]
  - Personality disorder [Unknown]
  - Psychotic disorder [Unknown]
